FAERS Safety Report 7545924-1 (Version None)
Quarter: 2011Q2

REPORT INFORMATION
  Report Type: 
  Country: None (occurrence: None)
  Receive Date: 20110607
  Receipt Date: 20110523
  Transmission Date: 20111010
  Serious: Yes (Death)
  Sender: FDA-Public Use
  Company Number: 2011-233

PATIENT
  Sex: Female

DRUGS (1)
  1. CLOZAPINE [Suspect]
     Dosage: MG, QD, ORAL
     Route: 048

REACTIONS (4)
  - UPPER RESPIRATORY TRACT INFECTION [None]
  - DRUG DOSE OMISSION [None]
  - RENAL IMPAIRMENT [None]
  - MYOCARDITIS [None]
